FAERS Safety Report 12885055 (Version 2)
Quarter: 2016Q4

REPORT INFORMATION
  Report Type: Report from Study
  Country: BR (occurrence: BR)
  Receive Date: 20161026
  Receipt Date: 20161205
  Transmission Date: 20170207
  Serious: Yes (Other)
  Sender: FDA-Public Use
  Company Number: PHHY2016BR093042

PATIENT
  Sex: Female
  Weight: 83 kg

DRUGS (1)
  1. AFINITOR [Suspect]
     Active Substance: EVEROLIMUS
     Indication: METASTATIC RENAL CELL CARCINOMA
     Dosage: 10 MG, QD (1 TABLET OF 10 MG)
     Route: 048
     Dates: start: 20150813

REACTIONS (18)
  - Pain [Unknown]
  - Noninfective gingivitis [Unknown]
  - Musculoskeletal chest pain [Recovering/Resolving]
  - Respiratory tract congestion [Unknown]
  - Toothache [Unknown]
  - General physical health deterioration [Unknown]
  - Sinusitis [Unknown]
  - Oral pain [Unknown]
  - Spinal disorder [Unknown]
  - Weight decreased [Unknown]
  - Body height decreased [Unknown]
  - Malaise [Unknown]
  - Nasopharyngitis [Unknown]
  - Infection [Unknown]
  - Eating disorder [Unknown]
  - Immunodeficiency [Unknown]
  - Metastases to spine [Unknown]
  - Metastases to bone [Unknown]
